FAERS Safety Report 18016491 (Version 1)
Quarter: 2020Q3

REPORT INFORMATION
  Report Type: Spontaneous
  Country: DE (occurrence: DE)
  Receive Date: 20200714
  Receipt Date: 20200714
  Transmission Date: 20201103
  Serious: Yes (Hospitalization)
  Sender: FDA-Public Use
  Company Number: DE-TEVA-2020-DE-1799013

PATIENT
  Age: 58 Year
  Sex: Male

DRUGS (7)
  1. EPLERENON [Suspect]
     Active Substance: EPLERENONE
     Dosage: 50 MG, NK
  2. LERCANIDIPINE [Concomitant]
     Active Substance: LERCANIDIPINE
     Dosage: 10 MILLIGRAM DAILY; 1?0?0?0
  3. INDAPAMID [Suspect]
     Active Substance: INDAPAMIDE
     Dosage: 2.5 MILLIGRAM DAILY; 1?0?0?0
  4. MOXONIDIN [Concomitant]
     Active Substance: MOXONIDINE
     Dosage: .2 MILLIGRAM DAILY; 0?0?1?0
  5. CANDESARTAN. [Concomitant]
     Active Substance: CANDESARTAN
     Dosage: 32 MILLIGRAM DAILY; 1?0?0?0
  6. BISOPROLOL [Concomitant]
     Active Substance: BISOPROLOL
     Dosage: 10 MILLIGRAM DAILY; 1?0?0?0
  7. COTRIM FORTE 800MG/160MG [Suspect]
     Active Substance: SULFAMETHOXAZOLE\TRIMETHOPRIM
     Dosage: 160|800 MG, NK

REACTIONS (4)
  - General physical health deterioration [Unknown]
  - Nausea [Unknown]
  - Vomiting [Unknown]
  - Electrolyte imbalance [Unknown]
